FAERS Safety Report 12547164 (Version 1)
Quarter: 2016Q3

REPORT INFORMATION
  Report Type: Spontaneous
  Country: DK (occurrence: DE)
  Receive Date: 20160711
  Receipt Date: 20160711
  Transmission Date: 20161109
  Serious: Yes (Congenital Anomaly, Other)
  Sender: FDA-Public Use
  Company Number: DE-FRI-1000085908

PATIENT
  Age: 0 Day
  Sex: Female
  Weight: 2.22 kg

DRUGS (9)
  1. DECORTIN-H / PREDNISOLONE [Suspect]
     Active Substance: PREDNISOLONE
     Route: 064
  2. CYTOTEC / MISOPROSTOL [Concomitant]
     Indication: LABOUR INDUCTION
     Route: 064
     Dates: start: 20151119, end: 20151119
  3. ESCITALOPRAM [Suspect]
     Active Substance: ESCITALOPRAM OXALATE
     Indication: DEPRESSION
     Dosage: 10 MG
     Route: 064
     Dates: start: 20150310, end: 20151119
  4. L-THYROXIN / LEVOTHYROXINE SODIUM [Concomitant]
     Indication: HYPOTHYROIDISM
     Dosage: 75 MG
     Route: 064
     Dates: start: 20150310, end: 20151119
  5. DECORTIN-H / PREDNISOLONE [Suspect]
     Active Substance: PREDNISOLONE
     Indication: SARCOIDOSIS
     Dosage: 5.5 MG
     Route: 064
     Dates: start: 20150310, end: 20151119
  6. AMPICILLIN / AMPICILLIN [Concomitant]
     Indication: INFECTION PROPHYLAXIS
     Route: 064
     Dates: start: 20151119, end: 20151119
  7. DEKRISTOL / COLECALCIFEROL [Concomitant]
     Indication: OSTEOPOROSIS PROPHYLAXIS
     Dosage: 1000 IU
     Route: 064
     Dates: start: 20150310, end: 20150413
  8. DEKRISTOL / COLECALCIFEROL [Concomitant]
     Route: 064
  9. FEMIBION SCHWANGERSCHAFT 1 / FOLIC ACID [Concomitant]
     Indication: PROPHYLAXIS OF NEURAL TUBE DEFECT
     Dosage: 0.8 MG
     Route: 064

REACTIONS (5)
  - Foetal exposure during pregnancy [Not Recovered/Not Resolved]
  - Respiratory disorder neonatal [Recovered/Resolved]
  - Congenital hydronephrosis [Unknown]
  - Bradycardia neonatal [Recovered/Resolved]
  - Kidney duplex [Not Recovered/Not Resolved]

NARRATIVE: CASE EVENT DATE: 20151119
